FAERS Safety Report 16367808 (Version 1)
Quarter: 2019Q2

REPORT INFORMATION
  Report Type: Spontaneous
  Country: US (occurrence: US)
  Receive Date: 20190529
  Receipt Date: 20190529
  Transmission Date: 20190711
  Serious: Yes (Other)
  Sender: FDA-Public Use
  Company Number: US-HIKMA PHARMACEUTICALS USA INC.-US-H14001-19-03642

PATIENT
  Age: 2 Week
  Sex: Male
  Weight: 4.7 kg

DRUGS (5)
  1. ATROPINE. [Suspect]
     Active Substance: ATROPINE
     Indication: CHEMICAL POISONING
     Route: 065
  2. ATROPINE. [Suspect]
     Active Substance: ATROPINE
     Route: 042
  3. ATROPINE. [Suspect]
     Active Substance: ATROPINE
     Route: 042
  4. PRALIDOXIME [Suspect]
     Active Substance: PRALIDOXIME
     Indication: CHEMICAL POISONING
     Route: 042
  5. PRALIDOXIME [Suspect]
     Active Substance: PRALIDOXIME
     Route: 065

REACTIONS (2)
  - Bronchial secretion retention [Recovered/Resolved]
  - Neonatal hypoxia [Recovered/Resolved]
